FAERS Safety Report 14772654 (Version 2)
Quarter: 2018Q2

REPORT INFORMATION
  Report Type: Report from Study
  Country: DE (occurrence: DE)
  Receive Date: 20180418
  Receipt Date: 20180522
  Transmission Date: 20180711
  Serious: Yes (Hospitalization, Other)
  Sender: FDA-Public Use
  Company Number: DE-ACCORD-065589

PATIENT
  Sex: Male
  Weight: 72 kg

DRUGS (12)
  1. AMIODARONE [Concomitant]
     Active Substance: AMIODARONE
     Indication: ARRHYTHMIA
     Dosage: 1 DF, QD
     Route: 048
     Dates: start: 20170314
  2. SYMBICORT [Concomitant]
     Active Substance: BUDESONIDE\FORMOTEROL FUMARATE DIHYDRATE
     Indication: CHRONIC OBSTRUCTIVE PULMONARY DISEASE
     Dosage: 1 DF, BID
     Route: 055
     Dates: start: 20160407
  3. FUROSEMIDE. [Suspect]
     Active Substance: FUROSEMIDE
     Indication: OEDEMA PERIPHERAL
     Dosage: 1 DF (125 OT), BID?1 DF (120 MG), BID (ORAL): SEP-2017
     Dates: start: 20170823
  4. ENTRESTO [Suspect]
     Active Substance: SACUBITRIL\VALSARTAN
     Indication: CARDIAC FAILURE
     Dosage: ALSO RECEIVED FROM 10-MAY-2017 TO 23-MAY-2017: 2DF DAILY (1 DF (24/26 MG), BID), ON 26-OCT-2017
     Route: 048
     Dates: start: 20170524
  5. XIPAMIDE [Suspect]
     Active Substance: XIPAMIDE
     Indication: OEDEMA PERIPHERAL
     Dosage: 1 DF (10 MG), QD?ALSO RECEIVED ON 23-AUG-2017, PRN
     Route: 048
     Dates: start: 20170530
  6. ATORVASTATIN [Concomitant]
     Active Substance: ATORVASTATIN
     Indication: HYPERCHOLESTEROLAEMIA
     Dosage: 1 DF, QD
     Route: 048
     Dates: start: 20170307
  7. ACETYLSALICYLIC ACID [Concomitant]
     Active Substance: ASPIRIN
     Indication: CORONARY ARTERY DISEASE
     Dosage: 1 DF, QD
     Route: 048
     Dates: start: 20170406
  8. SPIRIVA [Concomitant]
     Active Substance: TIOTROPIUM BROMIDE MONOHYDRATE
     Indication: CHRONIC OBSTRUCTIVE PULMONARY DISEASE
     Dosage: 1 DF, QD
     Route: 055
     Dates: start: 20160329
  9. LEVOTHYROXINE. [Concomitant]
     Active Substance: LEVOTHYROXINE
     Indication: HYPOTHYROIDISM
     Dosage: 1 DF, QD
     Route: 048
     Dates: start: 20170411
  10. TORASEMIDE [Concomitant]
     Active Substance: TORSEMIDE
     Indication: OEDEMA PERIPHERAL
     Dosage: 1 DF QD AND 2 DF QD
     Route: 048
     Dates: start: 20170301, end: 201709
  11. PANTOPRAZOLE [Concomitant]
     Active Substance: PANTOPRAZOLE
     Indication: GASTRITIS
     Dosage: 1 DF, QD
     Route: 048
     Dates: start: 20170406
  12. TAMSULOSIN/TAMSULOSIN HYDROCHLORIDE [Concomitant]
     Indication: BENIGN PROSTATIC HYPERPLASIA
     Dosage: 1 DF, QD
     Route: 048
     Dates: start: 20101108

REACTIONS (4)
  - Cardiac failure [Recovering/Resolving]
  - Cardiac failure chronic [Recovering/Resolving]
  - Inguinal hernia [Recovered/Resolved]
  - Renal impairment [Recovering/Resolving]

NARRATIVE: CASE EVENT DATE: 20170823
